FAERS Safety Report 20328105 (Version 1)
Quarter: 2022Q1

REPORT INFORMATION
  Report Type: Spontaneous
  Country: US (occurrence: US)
  Receive Date: 20220112
  Receipt Date: 20220112
  Transmission Date: 20220424
  Serious: Yes (Death, Hospitalization)
  Sender: FDA-Public Use
  Company Number: US-PFIZER INC-202200016604

PATIENT
  Age: 78 Year
  Sex: Female
  Weight: 65.77 kg

DRUGS (1)
  1. IBRANCE [Suspect]
     Active Substance: PALBOCICLIB
     Indication: Breast cancer
     Dosage: DAILY FOR 21 DAYS AND THEN OFF FOR ONE WEEK
     Dates: start: 201904

REACTIONS (3)
  - Death [Fatal]
  - COVID-19 [Unknown]
  - Bronchitis [Unknown]

NARRATIVE: CASE EVENT DATE: 20210101
